FAERS Safety Report 8595779-1 (Version None)
Quarter: 2012Q3

REPORT INFORMATION
  Report Type: 
  Country: None (occurrence: None)
  Receive Date: 20120815
  Receipt Date: 20120806
  Transmission Date: 20120928
  Serious: Yes (Other)
  Sender: FDA-Public Use
  Company Number: GB-ELI_LILLY_AND_COMPANY-GB201205009421

PATIENT
  Age: 59 Year
  Sex: Male
  Weight: 84 kg

DRUGS (4)
  1. CIALIS [Suspect]
     Indication: ERECTILE DYSFUNCTION
     Dosage: 10 MG, PRN
     Dates: start: 20110705, end: 20110705
  2. ACE INHIBITORS [Concomitant]
  3. OMEPRAZOLE [Concomitant]
  4. MIRTAZAPINE [Concomitant]

REACTIONS (4)
  - ANAPHYLACTIC SHOCK [None]
  - HEADACHE [None]
  - ANGIOEDEMA [None]
  - NAUSEA [None]
